FAERS Safety Report 4355669-7 (Version None)
Quarter: 2004Q2

REPORT INFORMATION
  Report Type: 
  Country: None (occurrence: None)
  Receive Date: 20040507
  Receipt Date: 20040421
  Transmission Date: 20050107
  Serious: Yes (Hospitalization)
  Sender: FDA-Public Use
  Company Number: 04P-163-0258228-00

PATIENT
  Age: 64 Year
  Sex: Female

DRUGS (10)
  1. SYNTHROID [Suspect]
     Indication: THYROIDECTOMY
     Dosage: 175 MCG 1 IN 1 D PER ORAL
     Route: 047
     Dates: start: 19630101
  2. MONOXADIL [Concomitant]
  3. PHENYTOIN [Concomitant]
  4. PHENERGAN [Concomitant]
  5. RAMIPRIL [Concomitant]
  6. CATAPRES [Concomitant]
  7. ASPIRIN [Concomitant]
  8. METOPROLOL [Concomitant]
  9. AMLODIPINE BESYLATE [Concomitant]
  10. INSULIN [Concomitant]

REACTIONS (8)
  - ALOPECIA [None]
  - BLOOD THYROID STIMULATING HORMONE ABNORMAL [None]
  - CONSTIPATION [None]
  - HYPOAESTHESIA ORAL [None]
  - INTRACRANIAL ANEURYSM [None]
  - OEDEMA PERIPHERAL [None]
  - SWELLING FACE [None]
  - WEIGHT DECREASED [None]
